FAERS Safety Report 17372420 (Version 1)
Quarter: 2020Q1

REPORT INFORMATION
  Report Type: Spontaneous
  Country: RU (occurrence: RU)
  Receive Date: 20200205
  Receipt Date: 20200205
  Transmission Date: 20200409
  Serious: Yes (Hospitalization, Other)
  Sender: FDA-Public Use
  Company Number: RU-ABBVIE-20K-251-3262767-00

PATIENT
  Age: 74 Year
  Sex: Male
  Weight: 105 kg

DRUGS (2)
  1. CAPOTEN [Concomitant]
     Active Substance: CAPTOPRIL
     Indication: PRODUCT USED FOR UNKNOWN INDICATION
  2. MAVIRET [Suspect]
     Active Substance: GLECAPREVIR\PIBRENTASVIR
     Indication: CHRONIC HEPATITIS C
     Dosage: DAILY DOSE: GLECAPREVIR 300 MG + PIBRENTASVIR 120 MG (3 TABLETS)
     Route: 048
     Dates: start: 20190605, end: 20190705

REACTIONS (4)
  - Hepatic cirrhosis [Not Recovered/Not Resolved]
  - Asthenia [Not Recovered/Not Resolved]
  - Ascites [Not Recovered/Not Resolved]
  - Abdominal distension [Unknown]

NARRATIVE: CASE EVENT DATE: 201907
